FAERS Safety Report 17588426 (Version 1)
Quarter: 2020Q1

REPORT INFORMATION
  Report Type: Report from Study
  Country: IT (occurrence: IT)
  Receive Date: 20200326
  Receipt Date: 20200326
  Transmission Date: 20200409
  Serious: Yes (Hospitalization, Other)
  Sender: FDA-Public Use
  Company Number: IT-BRISTOL-MYERS SQUIBB COMPANY-BMS-2020-024908

PATIENT
  Age: 75 Year
  Sex: Male

DRUGS (2)
  1. WARFARIN SODIUM. [Suspect]
     Active Substance: WARFARIN SODIUM
     Indication: ATRIAL FIBRILLATION
     Dosage: 5 MILLIGRAM, AS NECESSARY
     Route: 048
     Dates: start: 20130308, end: 20200210
  2. CARDIRENE [Interacting]
     Active Substance: ASPIRIN DL-LYSINE
     Indication: MYOCARDIAL ISCHAEMIA
     Dosage: 160 MILLIGRAM, DAILY
     Route: 048
     Dates: start: 20080623, end: 20200210

REACTIONS (5)
  - Eye oedema [Recovering/Resolving]
  - Subdural haematoma [Recovering/Resolving]
  - Drug interaction [Recovering/Resolving]
  - Cerebral haemorrhage [Recovering/Resolving]
  - Anaemia [Recovering/Resolving]

NARRATIVE: CASE EVENT DATE: 20200210
